FAERS Safety Report 4545885-3 (Version None)
Quarter: 2005Q1

REPORT INFORMATION
  Report Type: 
  Country: None (occurrence: None)
  Receive Date: 20050103
  Receipt Date: 20041215
  Transmission Date: 20050727
  Serious: Yes (Disabling)
  Sender: FDA-Public Use
  Company Number: 2004BI000017

PATIENT
  Age: 44 Year
  Sex: Female
  Weight: 65.7716 kg

DRUGS (15)
  1. AVONEX [Suspect]
     Indication: MULTIPLE SCLEROSIS
     Dosage: 30 UG; BIW, IM
     Route: 030
     Dates: start: 19980101, end: 20030101
  2. AVONEX [Suspect]
     Indication: MULTIPLE SCLEROSIS
     Dosage: 30 UG; BIW, IM
     Route: 030
     Dates: start: 20030101, end: 20041104
  3. MACROBID [Concomitant]
  4. ZITHROMAX [Concomitant]
  5. DIAZEPAM [Concomitant]
  6. DEPO-PROVERA [Concomitant]
  7. FERROUS GLUCONATE [Concomitant]
  8. LORATADINE [Concomitant]
  9. TRIAMTERENE AND HYDROCHLOROTHIAZIDE [Concomitant]
  10. ZANTAC [Concomitant]
  11. FLONASE INHALER [Concomitant]
  12. VITAMIN B-12 [Concomitant]
  13. METHOTREXATE [Concomitant]
  14. FOLIC ACID [Concomitant]
  15. BACLOFEN [Concomitant]

REACTIONS (6)
  - BLINDNESS [None]
  - DRUG INEFFECTIVE [None]
  - DYSKINESIA [None]
  - NEUROMYELITIS OPTICA [None]
  - OPTIC NEURITIS [None]
  - TREATMENT NONCOMPLIANCE [None]
